FAERS Safety Report 6592012-7 (Version None)
Quarter: 2010Q1

REPORT INFORMATION
  Report Type: 
  Country: None (occurrence: None)
  Receive Date: 20100221
  Receipt Date: 20090930
  Transmission Date: 20100710
  Serious: No
  Sender: FDA-Public Use
  Company Number: US-ALLERGAN-0911813US

PATIENT
  Age: 35 Year
  Sex: Female
  Weight: 70.295 kg

DRUGS (1)
  1. BOTOX COSMETIC [Suspect]
     Indication: SKIN WRINKLING
     Dosage: 34 UNITS, SINGLE
     Dates: start: 20090815, end: 20090815

REACTIONS (1)
  - EYELID PTOSIS [None]
